FAERS Safety Report 25593809 (Version 1)
Quarter: 2025Q3

REPORT INFORMATION
  Report Type: Report from Study
  Country: GB (occurrence: GB)
  Receive Date: 20250723
  Receipt Date: 20250723
  Transmission Date: 20251021
  Serious: Yes (Other)
  Sender: ALEXION PHARMACEUTICALS
  Company Number: GB-AstraZeneca-CH-00912009A

PATIENT
  Age: 67 Year
  Sex: Male

DRUGS (3)
  1. BENRALIZUMAB [Suspect]
     Active Substance: BENRALIZUMAB
     Indication: Asthma
     Dosage: 30 MILLIGRAM, Q8W
  2. BENRALIZUMAB [Suspect]
     Active Substance: BENRALIZUMAB
  3. RIVAROXABAN [Suspect]
     Active Substance: RIVAROXABAN
     Route: 065

REACTIONS (2)
  - Thrombosis [Recovering/Resolving]
  - Gout [Unknown]
